FAERS Safety Report 4952055-3 (Version None)
Quarter: 2006Q1

REPORT INFORMATION
  Report Type: 
  Country: None (occurrence: None)
  Receive Date: 20060320
  Receipt Date: 20060307
  Transmission Date: 20060701
  Serious: Yes (Hospitalization)
  Sender: FDA-Public Use
  Company Number: 2004028745

PATIENT
  Age: 60 Year
  Sex: Male

DRUGS (8)
  1. LIPITOR [Suspect]
     Indication: DYSLIPIDAEMIA
     Dosage: 20 MG (20 MG, 1N 1 D), ORAL
     Route: 048
     Dates: start: 20040401
  2. CAPTOPRIL                  (CAPTROPRIL) [Concomitant]
  3. ISOSORBIDE MONONITRATE [Concomitant]
  4. TICLOPIDINE             (TICLOPIDINE) [Concomitant]
  5. CARVEDILOL [Concomitant]
  6. ENALAPRIL MALEATE [Concomitant]
  7. HIGROTON                    (CHLORTALIDONE) [Concomitant]
  8. WARFARIN SODIUM [Concomitant]

REACTIONS (3)
  - ARRHYTHMIA [None]
  - ARTERIAL DISORDER [None]
  - MYOCARDIAL INFARCTION [None]
